FAERS Safety Report 15230606 (Version 1)
Quarter: 2018Q3

REPORT INFORMATION
  Report Type: Spontaneous
  Country: US (occurrence: US)
  Receive Date: 20180802
  Receipt Date: 20180802
  Transmission Date: 20181010
  Serious: No
  Sender: FDA-Public Use
  Company Number: US-BAYER-2018-144309

PATIENT
  Age: 61 Year
  Sex: Male
  Weight: 109 kg

DRUGS (1)
  1. MIRALAX [Suspect]
     Active Substance: POLYETHYLENE GLYCOL 3350
     Indication: GASTROINTESTINAL DISORDER
     Dosage: 1 1/2 DOSES DAILY DOSE
     Route: 048

REACTIONS (2)
  - Incorrect dosage administered [Unknown]
  - Constipation [Unknown]

NARRATIVE: CASE EVENT DATE: 20180725
